FAERS Safety Report 18580871 (Version 1)
Quarter: 2020Q4

REPORT INFORMATION
  Report Type: Spontaneous
  Country: US (occurrence: US)
  Receive Date: 20201204
  Receipt Date: 20201204
  Transmission Date: 20210114
  Serious: Yes (Other)
  Sender: FDA-Public Use
  Company Number: US-PFIZER INC-2020474990

PATIENT
  Age: 56 Year
  Sex: Male

DRUGS (1)
  1. NEURONTIN [Suspect]
     Active Substance: GABAPENTIN
     Indication: NERVE INJURY
     Dosage: UNK

REACTIONS (4)
  - Sinus headache [Unknown]
  - Neuropathy peripheral [Unknown]
  - Sinusitis [Unknown]
  - Off label use [Unknown]
